FAERS Safety Report 17045546 (Version 2)
Quarter: 2019Q4

REPORT INFORMATION
  Report Type: Spontaneous
  Country: ZA (occurrence: ZA)
  Receive Date: 20191118
  Receipt Date: 20191223
  Transmission Date: 20200122
  Serious: Yes (Death)
  Sender: FDA-Public Use
  Company Number: NVSC2019ZA039730

PATIENT
  Age: 26 Year
  Sex: Male
  Weight: 8.2 kg

DRUGS (8)
  1. VOLIBRIS [Suspect]
     Active Substance: AMBRISENTAN
     Indication: PULMONARY HYPERTENSION
     Dosage: 5 MG, UNKNOWN
     Route: 048
     Dates: start: 20190131
  2. JADENU [Suspect]
     Active Substance: DEFERASIROX
     Indication: THALASSAEMIA BETA
     Dosage: 1800 MG, UNKNOWN
     Route: 048
     Dates: start: 20190711
  3. DESFERAL [Suspect]
     Active Substance: DEFEROXAMINE MESYLATE
     Indication: IRON OVERLOAD
     Dosage: 4 G, UNKNOWN
     Route: 058
     Dates: start: 1994
  4. LASIX [Suspect]
     Active Substance: FUROSEMIDE
     Indication: CARDIAC FAILURE CONGESTIVE
     Dosage: 125 MG, BID
     Route: 048
     Dates: start: 2018
  5. SPIRACTIN [SPIRONOLACTONE] [Suspect]
     Active Substance: SPIRONOLACTONE
     Indication: CARDIAC FAILURE CONGESTIVE
     Dosage: 50 MG, BID
     Route: 048
     Dates: start: 20190131
  6. HUMALOG N [Suspect]
     Active Substance: INSULIN LISPRO
     Indication: TYPE 2 DIABETES MELLITUS
     Dosage: UNK
     Route: 058
     Dates: start: 2013
  7. CLAVOR [AMOXICILLIN TRIHYDRATE/CLAVUNATE POTASSIUM] [Suspect]
     Active Substance: AMOXICILLIN\CLAVULANATE POTASSIUM
     Indication: PULMONARY HYPERTENSION
     Dosage: 20 MG, UNKNOWN
     Route: 048
     Dates: start: 20190131
  8. B-CAL-D [Suspect]
     Active Substance: CALCIUM CARBONATE\CHOLECALCIFEROL
     Indication: HYPERPARATHYROIDISM
     Dosage: UNK
     Route: 048
     Dates: start: 20190131

REACTIONS (2)
  - Cardiac death [Fatal]
  - Cardiopulmonary failure [Fatal]

NARRATIVE: CASE EVENT DATE: 20191009
